FAERS Safety Report 7712030-2 (Version None)
Quarter: 2011Q3

REPORT INFORMATION
  Report Type: 
  Country: None (occurrence: None)
  Receive Date: 20110826
  Receipt Date: 20110815
  Transmission Date: 20111222
  Serious: Yes (Other)
  Sender: FDA-Public Use
  Company Number: SG-TYCO HEALTHCARE/MALLINCKRODT-T201101585

PATIENT
  Age: 49 Year
  Sex: Male

DRUGS (1)
  1. SODIUM IODIDE I 131 [Suspect]
     Indication: BASEDOW'S DISEASE
     Dosage: 18 MCI, SINGLE

REACTIONS (1)
  - RHABDOMYOLYSIS [None]
